FAERS Safety Report 19241786 (Version 1)
Quarter: 2021Q2

REPORT INFORMATION
  Report Type: Spontaneous
  Country: US (occurrence: US)
  Receive Date: 20210511
  Receipt Date: 20210511
  Transmission Date: 20210717
  Serious: Yes (Hospitalization)
  Sender: FDA-Public Use
  Company Number: None

PATIENT
  Age: 16 Year
  Sex: Male
  Weight: 79.65 kg

DRUGS (1)
  1. CONCERTA [Suspect]
     Active Substance: METHYLPHENIDATE HYDROCHLORIDE
     Indication: ATTENTION DEFICIT HYPERACTIVITY DISORDER
     Route: 048
     Dates: start: 20201207, end: 20210222

REACTIONS (5)
  - Therapy interrupted [None]
  - Mania [None]
  - Judgement impaired [None]
  - Suicidal ideation [None]
  - Homicidal ideation [None]

NARRATIVE: CASE EVENT DATE: 20210222
